FAERS Safety Report 8012964-8 (Version None)
Quarter: 2011Q4

REPORT INFORMATION
  Report Type: 
  Country: None (occurrence: None)
  Receive Date: 20111223
  Receipt Date: 20111208
  Transmission Date: 20120403
  Serious: Yes (Hospitalization)
  Sender: FDA-Public Use
  Company Number: CIO11022681

PATIENT
  Age: 62 Year
  Sex: Male

DRUGS (12)
  1. OMEPRAZOL /00661201/ (OMEPRAZOLE) [Concomitant]
  2. PROVIGIL [Concomitant]
  3. NIACIN [Concomitant]
  4. NAMENDA [Concomitant]
  5. GABAPENTIN [Concomitant]
  6. CLONAZEPAM [Concomitant]
  7. ASPIRIN [Concomitant]
  8. BUPROBAN (BUPROPION HYDROCHLORIDE) [Concomitant]
  9. PRO-HEALTH INVIGORATING CLEAN MULTI-PROTECTION ORAL RINSE, INVIG MINT( [Suspect]
     Dosage: 1 APPLIC, 2 /DAY FOR 2 DAYS, INTRAORAL
     Route: 048
     Dates: start: 20111201, end: 20111202
  10. PAXIL [Concomitant]
  11. METOPROLOL TARTRATE [Concomitant]
  12. NALOPRIL (ENALAPRIL MALEATE) [Concomitant]

REACTIONS (6)
  - CHEMICAL BURN OF GASTROINTESTINAL TRACT [None]
  - MOUTH ULCERATION [None]
  - LIP SWELLING [None]
  - STOMATITIS [None]
  - SWOLLEN TONGUE [None]
  - GINGIVAL BLISTER [None]
